FAERS Safety Report 7930152-8 (Version None)
Quarter: 2011Q4

REPORT INFORMATION
  Report Type: 
  Country: None (occurrence: None)
  Receive Date: 20111117
  Receipt Date: 20111112
  Transmission Date: 20120403
  Serious: Yes (Other)
  Sender: FDA-Public Use
  Company Number: 201109035

PATIENT
  Age: 58 Year
  Sex: Male
  Weight: 72.5755 kg

DRUGS (5)
  1. TESTIM [Suspect]
     Indication: BLOOD TESTOSTERONE DECREASED
     Dosage: 1 IN 1 D, TRANSDERMAL
     Route: 062
     Dates: end: 20110101
  2. ALLOPURINOL [Concomitant]
  3. TRAMADOL HCL [Concomitant]
  4. DICLOFENAC SODIUM [Concomitant]
  5. TRAZODONE HCL [Concomitant]

REACTIONS (2)
  - CHORIORETINOPATHY [None]
  - SCOTOMA [None]
